FAERS Safety Report 12475207 (Version 6)
Quarter: 2017Q4

REPORT INFORMATION
  Report Type: Spontaneous
  Country: US (occurrence: US)
  Receive Date: 20160617
  Receipt Date: 20171113
  Transmission Date: 20180320
  Serious: No
  Sender: FDA-Public Use
  Company Number: US-PFIZER INC-2016286938

PATIENT
  Age: 78 Year
  Sex: Female
  Weight: 55.56 kg

DRUGS (6)
  1. NEURONTIN [Suspect]
     Active Substance: GABAPENTIN
     Indication: ARTHRITIS
  2. CRESTOR [Concomitant]
     Active Substance: ROSUVASTATIN CALCIUM
  3. THYROID [Concomitant]
     Active Substance: LEVOTHYROXINE\LIOTHYRONINE
  4. NEURONTIN [Suspect]
     Active Substance: GABAPENTIN
     Indication: HYPOAESTHESIA
     Dosage: 100 MG, 1 TO 3 X DAILY ROUGHLY
     Dates: start: 20151201, end: 20160228
  5. NEURONTIN [Suspect]
     Active Substance: GABAPENTIN
     Indication: PAIN
  6. ASPIRIN. [Concomitant]
     Active Substance: ASPIRIN

REACTIONS (6)
  - Feeling abnormal [Unknown]
  - Disturbance in attention [Unknown]
  - Drug ineffective for unapproved indication [Unknown]
  - Memory impairment [Recovered/Resolved]
  - Confusional state [Recovered/Resolved]
  - Dizziness [Unknown]

NARRATIVE: CASE EVENT DATE: 20160101
